FAERS Safety Report 21626934 (Version 1)
Quarter: 2022Q4

REPORT INFORMATION
  Report Type: Spontaneous
  Country: US (occurrence: None)
  Receive Date: 20221121
  Receipt Date: 20221121
  Transmission Date: 20230113
  Serious: No
  Sender: FDA-Public Use
  Company Number: None

PATIENT
  Age: 65 Year
  Sex: Female

DRUGS (22)
  1. CAPECITABINE [Suspect]
     Active Substance: CAPECITABINE
     Indication: Cholangiocarcinoma
     Dosage: FREQUENCY : TWICE A DAY;?
     Route: 048
  2. ALBUTEROL [Concomitant]
     Active Substance: ALBUTEROL
  3. ASCORBIC [Concomitant]
  4. CRESTOR [Concomitant]
     Active Substance: ROSUVASTATIN CALCIUM
  5. CYCLOBENZAPRINE [Concomitant]
     Active Substance: CYCLOBENZAPRINE
  6. FLUTICASONE-SLMETEROL [Concomitant]
  7. FLUZONE [Concomitant]
     Active Substance: INFLUENZA A VIRUS A/CALIFORNIA/7/2009 X-179A (H1N1) ANTIGEN (FORMALDEHYDE INACTIVATED)\INFLUENZA A V
  8. GABAPENTIN [Concomitant]
     Active Substance: GABAPENTIN
  9. HUMULIN NOS [Concomitant]
     Active Substance: INSULIN HUMAN
  10. IPRATROPIUM [Concomitant]
     Active Substance: IPRATROPIUM
  11. LEUKINE [Concomitant]
     Active Substance: SARGRAMOSTIM
  12. LIDOCAINE [Concomitant]
     Active Substance: LIDOCAINE
  13. LISINOPRIL [Concomitant]
     Active Substance: LISINOPRIL
  14. METFORMIN [Concomitant]
     Active Substance: METFORMIN HYDROCHLORIDE
  15. MORPHINE [Concomitant]
     Active Substance: MORPHINE
  16. VITAMINS [Concomitant]
     Active Substance: VITAMINS
  17. OXYGEN [Concomitant]
     Active Substance: OXYGEN
  18. POTASSIUM CHLORIDE [Concomitant]
     Active Substance: POTASSIUM CHLORIDE
  19. SYNTHROID [Concomitant]
     Active Substance: LEVOTHYROXINE SODIUM
  20. TYLENOL [Concomitant]
     Active Substance: ACETAMINOPHEN
  21. VITAMIN B12 [Concomitant]
     Active Substance: CYANOCOBALAMIN
  22. WARFARIN [Concomitant]
     Active Substance: WARFARIN

REACTIONS (7)
  - Palmar-plantar erythrodysaesthesia syndrome [None]
  - Abdominal discomfort [None]
  - Diarrhoea [None]
  - Vomiting [None]
  - Abdominal pain upper [None]
  - Cholecystectomy [None]
  - Procedural pain [None]
